FAERS Safety Report 5663925-5 (Version None)
Quarter: 2008Q1

REPORT INFORMATION
  Report Type: 
  Country: None (occurrence: None)
  Receive Date: 20080311
  Receipt Date: 20080222
  Transmission Date: 20080703
  Serious: Yes (Other)
  Sender: FDA-Public Use
  Company Number: S08-CAN-00846-01

PATIENT
  Sex: Female

DRUGS (2)
  1. ESCITALOPRAM [Suspect]
     Dates: start: 20071201
  2. ANTIEPILEPTICS (NOS) [Concomitant]

REACTIONS (1)
  - EPILEPSY [None]
